FAERS Safety Report 5311561-2 (Version None)
Quarter: 2007Q2

REPORT INFORMATION
  Report Type: 
  Country: None (occurrence: None)
  Receive Date: 20070430
  Receipt Date: 20070420
  Transmission Date: 20071010
  Serious: Yes (Other)
  Sender: FDA-Public Use
  Company Number: GB-GLAXOSMITHKLINE-B0468556A

PATIENT
  Sex: Male

DRUGS (5)
  1. ZIDOVUDINE [Suspect]
     Indication: DRUG USE FOR UNKNOWN INDICATION
     Route: 065
  2. INTERFERON ALPHA [Suspect]
  3. RIBAVIRIN [Suspect]
  4. VIDEX [Suspect]
  5. NEVIRAPINE [Suspect]

REACTIONS (7)
  - ALANINE AMINOTRANSFERASE INCREASED [None]
  - ANAEMIA [None]
  - ASPARTATE AMINOTRANSFERASE INCREASED [None]
  - DEPRESSION [None]
  - FATIGUE [None]
  - HEPATITIS C [None]
  - HYPERTHYROIDISM [None]
